FAERS Safety Report 25319841 (Version 3)
Quarter: 2025Q2

REPORT INFORMATION
  Report Type: Spontaneous
  Country: US (occurrence: US)
  Receive Date: 20250515
  Receipt Date: 20250531
  Transmission Date: 20250717
  Serious: No
  Sender: TORRENT PHARMA INC.
  Company Number: US-TORRENT-00014336

PATIENT
  Sex: Female

DRUGS (1)
  1. ROSUVASTATIN CALCIUM [Suspect]
     Active Substance: ROSUVASTATIN CALCIUM
     Indication: Blood cholesterol
     Dosage: PINK, BEVELED-EDGE, BICONVEX, ROUND SHAPE, SIDE 1R5,1 TAB BY MOUTH DAILY, 5 MG ONCE IN THE EVENING
     Route: 048
     Dates: start: 20250514, end: 20250519

REACTIONS (4)
  - Adverse drug reaction [Unknown]
  - Pain in extremity [Unknown]
  - Feeling jittery [Unknown]
  - Insomnia [Unknown]

NARRATIVE: CASE EVENT DATE: 20250514
